FAERS Safety Report 12297617 (Version 2)
Quarter: 2016Q2

REPORT INFORMATION
  Report Type: Report from Study
  Country: CD (occurrence: CD)
  Receive Date: 20160422
  Receipt Date: 20160503
  Transmission Date: 20160815
  Serious: Yes (Death, Other)
  Sender: FDA-Public Use
  Company Number: PHHY2016CD049948

PATIENT
  Age: 50 Year
  Sex: Male

DRUGS (2)
  1. GLIVEC [Suspect]
     Active Substance: IMATINIB MESYLATE
     Indication: CHRONIC MYELOID LEUKAEMIA
     Dosage: 400 MG, QD
     Route: 048
     Dates: start: 20131016
  2. GLIVEC [Suspect]
     Active Substance: IMATINIB MESYLATE
     Dosage: 600 MG, QD
     Route: 048
     Dates: start: 201310, end: 20160415

REACTIONS (12)
  - Dizziness [Unknown]
  - Malaria [Not Recovered/Not Resolved]
  - Malignant neoplasm progression [Not Recovered/Not Resolved]
  - Asthenia [Unknown]
  - Chronic myeloid leukaemia [Not Recovered/Not Resolved]
  - Drug resistance [Not Recovered/Not Resolved]
  - Death [Fatal]
  - Splenomegaly [Not Recovered/Not Resolved]
  - Sepsis [Unknown]
  - Somnolence [Unknown]
  - Hyperhidrosis [Unknown]
  - Lethargy [Unknown]

NARRATIVE: CASE EVENT DATE: 201510
